FAERS Safety Report 11460097 (Version 1)
Quarter: 2015Q3

REPORT INFORMATION
  Report Type: Spontaneous
  Country: US (occurrence: US)
  Receive Date: 20150904
  Receipt Date: 20150904
  Transmission Date: 20151125
  Serious: No
  Sender: FDA-Public Use
  Company Number: US-BAYER-2015-407168

PATIENT
  Age: 90 Year
  Sex: Male
  Weight: 68.2 kg

DRUGS (5)
  1. BAYER GENUINE ASPIRIN [Suspect]
     Active Substance: ASPIRIN
     Indication: ISCHAEMIC HEART DISEASE PROPHYLAXIS
     Dosage: UNK DF, UNK
  2. VITAMIN D [Concomitant]
     Active Substance: CHOLECALCIFEROL
  3. CLARITIN REDITABS [Suspect]
     Active Substance: LORATADINE
     Indication: RASH MACULAR
     Dosage: 2 DF, ONCE
     Route: 048
     Dates: start: 20150818, end: 20150818
  4. CLARITIN REDITABS [Suspect]
     Active Substance: LORATADINE
     Indication: RASH MACULAR
     Dosage: 1 DF, BID
     Route: 048
     Dates: start: 20150803
  5. VITAMIN C [Concomitant]
     Active Substance: ASCORBIC ACID

REACTIONS (3)
  - Product use issue [None]
  - Product use issue [None]
  - Expired product administered [None]

NARRATIVE: CASE EVENT DATE: 20150813
